FAERS Safety Report 8327500-6 (Version None)
Quarter: 2012Q2

REPORT INFORMATION
  Report Type: 
  Country: None (occurrence: None)
  Receive Date: 20120423
  Receipt Date: 20120409
  Transmission Date: 20120825
  Serious: Yes (Hospitalization, Other)
  Sender: FDA-Public Use
  Company Number: US-145288

PATIENT
  Sex: Male
  Weight: 86.4 kg

DRUGS (4)
  1. HEPAGAM B [Suspect]
     Indication: ANTIVIRAL PROPHYLAXIS
     Dosage: 80 ML TOTAL INTRAVENOUS (NOT OTHERWISE SPECIFIED)
     Route: 042
     Dates: start: 20120302, end: 20120302
  2. HEPAGAM B [Suspect]
     Indication: ANTIVIRAL PROPHYLAXIS
     Dosage: 15 ML TOTAL INTRAVENOUS (NOT OTHERWISE SPECIFIED)
     Route: 042
     Dates: start: 20120303, end: 20120303
  3. HEPAGAM B [Suspect]
     Indication: ANTIVIRAL PROPHYLAXIS
     Dosage: 37 ML TOTAL INTRAVENOUS (NOT OTHERWISE SPECIFIED))
     Route: 042
     Dates: start: 20120302, end: 20120302
  4. HEPAGAM B [Suspect]
     Indication: ANTIVIRAL PROPHYLAXIS
     Dosage: 15 ML TOTAL INTRAVENOUS (NOT OTHERWISE SPECIFIED)
     Route: 042
     Dates: start: 20120309, end: 20120309

REACTIONS (7)
  - INCORRECT DOSE ADMINISTERED [None]
  - POST PROCEDURAL HAEMORRHAGE [None]
  - INAPPROPRIATE SCHEDULE OF DRUG ADMINISTRATION [None]
  - HAEMODIALYSIS [None]
  - ANAEMIA POSTOPERATIVE [None]
  - RENAL FAILURE ACUTE [None]
  - ILEUS PARALYTIC [None]
